FAERS Safety Report 5531994-9 (Version None)
Quarter: 2007Q4

REPORT INFORMATION
  Report Type: 
  Country: None (occurrence: None)
  Receive Date: 20071203
  Receipt Date: 20071127
  Transmission Date: 20080405
  Serious: Yes (Other)
  Sender: FDA-Public Use
  Company Number: JP-MERCK-0711USA03865

PATIENT
  Age: 62 Year
  Sex: Male

DRUGS (5)
  1. PRIMAXIN [Suspect]
     Route: 065
     Dates: start: 20051025
  2. UNASYN (SULTAMICILLIN TOSYLATE) [Concomitant]
     Route: 065
     Dates: end: 20051019
  3. ROCEPHIN [Concomitant]
     Route: 065
     Dates: start: 20051019, end: 20051025
  4. FOSMICIN [Concomitant]
     Route: 065
     Dates: start: 20051025
  5. GLOBULIN, IMMUNE [Concomitant]
     Route: 065
     Dates: start: 20051025

REACTIONS (1)
  - BRAIN ABSCESS [None]
